FAERS Safety Report 5214216-8 (Version None)
Quarter: 2007Q1

REPORT INFORMATION
  Report Type: 
  Country: None (occurrence: None)
  Receive Date: 20070122
  Receipt Date: 20070112
  Transmission Date: 20070707
  Serious: Yes (Hospitalization)
  Sender: FDA-Public Use
  Company Number: CH-ROCHE-478381

PATIENT
  Age: 66 Year
  Sex: Female

DRUGS (3)
  1. BONVIVA [Suspect]
     Route: 048
     Dates: start: 20060115
  2. OLMETEC [Suspect]
     Indication: ESSENTIAL HYPERTENSION
     Route: 048
     Dates: start: 20060115
  3. ADALAT [Suspect]
     Indication: ESSENTIAL HYPERTENSION
     Dosage: DRUG REPORTED AS ADALAT CR 30MG RETARDTABLETTEN. THE PATIENT IS TAKING THIS DRUG SINCE YEARS.
     Route: 048

REACTIONS (3)
  - ECZEMA [None]
  - EOSINOPHILIA [None]
  - PRURITUS [None]
